FAERS Safety Report 9570859 (Version 2)
Quarter: 2013Q4

REPORT INFORMATION
  Report Type: Spontaneous
  Country: AR (occurrence: AR)
  Receive Date: 20131001
  Receipt Date: 20131010
  Transmission Date: 20140711
  Serious: Yes (Other)
  Sender: FDA-Public Use
  Company Number: AR-AMGEN-ARGSP2013068536

PATIENT
  Age: 40 Year
  Sex: Female

DRUGS (4)
  1. ENBREL [Suspect]
     Indication: PSORIATIC ARTHROPATHY
     Dosage: 50 MG, WEEKLY
     Route: 058
     Dates: start: 20081015
  2. ENALAPRIL MALEATE [Concomitant]
     Dosage: UNK
     Route: 048
     Dates: start: 2003
  3. DICLOFENAC [Concomitant]
     Dosage: UNK
     Route: 048
     Dates: start: 2008
  4. IBUPROFEN [Concomitant]
     Dosage: UNK
     Route: 048
     Dates: start: 2008

REACTIONS (1)
  - Foot deformity [Recovered/Resolved]
